FAERS Safety Report 18848001 (Version 1)
Quarter: 2021Q1

REPORT INFORMATION
  Report Type: Spontaneous
  Country: US (occurrence: US)
  Receive Date: 20210204
  Receipt Date: 20210204
  Transmission Date: 20210419
  Serious: No
  Sender: FDA-Public Use
  Company Number: US-HILL DERMACEUTICALS, INC.-2106351

PATIENT
  Sex: Female

DRUGS (3)
  1. DERMA?SMOOTHE/FS [Suspect]
     Active Substance: FLUOCINOLONE ACETONIDE
     Indication: ALOPECIA
     Route: 061
     Dates: start: 20200805, end: 20200805
  2. WOMENS ROGAINE [Concomitant]
     Active Substance: MINOXIDIL
  3. HEAD AND SHOULDERS CLINICAL SOLUTIONS 2IN1 ITCH [Concomitant]
     Active Substance: SELENIUM SULFIDE

REACTIONS (2)
  - Application site pruritus [Recovering/Resolving]
  - Application site pain [Recovering/Resolving]

NARRATIVE: CASE EVENT DATE: 20200805
